FAERS Safety Report 10248474 (Version 1)
Quarter: 2014Q2

REPORT INFORMATION
  Report Type: Spontaneous
  Country: CA (occurrence: CA)
  Receive Date: 20140620
  Receipt Date: 20140620
  Transmission Date: 20141212
  Serious: Yes (Other)
  Sender: FDA-Public Use
  Company Number: CA-AMGEN INC.-CANSP2014045850

PATIENT
  Age: 66 Year
  Sex: Female

DRUGS (6)
  1. ENBREL [Suspect]
     Indication: RHEUMATOID ARTHRITIS
     Dosage: 50 MG, UNK
     Route: 065
     Dates: start: 20100906
  2. METHOTREXATE [Suspect]
     Indication: PRODUCT USED FOR UNKNOWN INDICATION
     Dosage: 20 MG, QWK
     Route: 065
  3. CELEBREX [Concomitant]
     Dosage: UNK UNK, BID
  4. PAXIL                              /00500401/ [Concomitant]
     Dosage: 25 MG, QD
  5. ATENOLOL [Concomitant]
     Dosage: 25 MG, UNK
  6. FOLIC ACID [Concomitant]
     Dosage: 5 MG, UNK

REACTIONS (7)
  - Loss of consciousness [Not Recovered/Not Resolved]
  - Dysstasia [Recovered/Resolved]
  - Bedridden [Recovered/Resolved]
  - Drug interaction [Recovered/Resolved]
  - Gait disturbance [Not Recovered/Not Resolved]
  - Rheumatoid arthritis [Not Recovered/Not Resolved]
  - Inappropriate schedule of drug administration [Recovered/Resolved]
